FAERS Safety Report 5923255-0 (Version None)
Quarter: 2008Q4

REPORT INFORMATION
  Report Type: 
  Country: None (occurrence: None)
  Receive Date: 20081015
  Receipt Date: 20081003
  Transmission Date: 20090506
  Serious: Yes (Hospitalization, Other)
  Sender: FDA-Public Use
  Company Number: 2008SP019733

PATIENT
  Age: 76 Year
  Sex: Male
  Weight: 111.5849 kg

DRUGS (2)
  1. AFRIN [Suspect]
     Indication: NASOPHARYNGITIS
     Dosage: ;QD;NAS
     Route: 045
     Dates: start: 20080810, end: 20080811
  2. AFRIN [Suspect]
     Indication: OFF LABEL USE
     Dosage: ;QD;NAS
     Route: 045
     Dates: start: 20080810, end: 20080811

REACTIONS (1)
  - HEART RATE INCREASED [None]
